FAERS Safety Report 5062743-9 (Version None)
Quarter: 2006Q3

REPORT INFORMATION
  Report Type: 
  Country: None (occurrence: None)
  Receive Date: 20060726
  Receipt Date: 20060713
  Transmission Date: 20061208
  Serious: Yes (Other)
  Sender: FDA-Public Use
  Company Number: GB-BOEHRINGER INGELHEIM PHARMACEUTICALS, INC.-2006-DE-03556GD

PATIENT
  Sex: Male
  Weight: 3.5 kg

DRUGS (8)
  1. ALBUTEROL SPIROS [Suspect]
     Route: 015
  2. ALBUTEROL SPIROS [Suspect]
     Route: 055
  3. HYDROCORTISONE TAB [Suspect]
     Route: 015
  4. IPRATROPIUM BROMIDE [Suspect]
     Route: 015
  5. CLARITHROMYCIN [Suspect]
     Route: 015
  6. AMINOPHYLLINE [Suspect]
     Route: 015
  7. MAGNESIUM SULFATE [Suspect]
     Route: 015
  8. AMOXICILLIN [Suspect]
     Route: 015

REACTIONS (4)
  - CAESAREAN SECTION [None]
  - DRUG EXPOSURE DURING PREGNANCY [None]
  - FOETAL DISTRESS SYNDROME [None]
  - TACHYCARDIA FOETAL [None]
